FAERS Safety Report 25750720 (Version 1)
Quarter: 2025Q3

REPORT INFORMATION
  Report Type: Spontaneous
  Country: AU (occurrence: AU)
  Receive Date: 20250902
  Receipt Date: 20250902
  Transmission Date: 20251020
  Serious: Yes (Hospitalization, Other)
  Sender: AZURITY PHARMACEUTICALS
  Company Number: AU-AZURITY PHARMACEUTICALS, INC.-AZR202508-002598

PATIENT
  Age: 67 Year
  Sex: Male

DRUGS (1)
  1. METHOTREXATE [Suspect]
     Active Substance: METHOTREXATE
     Indication: Cardiac sarcoidosis
     Route: 065

REACTIONS (5)
  - Ventricular tachycardia [Unknown]
  - Enterovesical fistula [Unknown]
  - Sepsis [Unknown]
  - Latent tuberculosis [Unknown]
  - Product use in unapproved indication [Unknown]
